FAERS Safety Report 15631004 (Version 1)
Quarter: 2018Q4

REPORT INFORMATION
  Report Type: Spontaneous
  Country: US (occurrence: US)
  Receive Date: 20181119
  Receipt Date: 20181119
  Transmission Date: 20190205
  Serious: No
  Sender: FDA-Public Use
  Company Number: US-009507513-1811USA003340

PATIENT
  Age: 30 Year
  Sex: Female

DRUGS (1)
  1. SYLATRON [Suspect]
     Active Substance: PEGINTERFERON ALFA-2B
     Indication: THROMBOCYTOPENIA
     Dosage: 462 MICROGRAM (0.38), QW
     Route: 058
     Dates: start: 20180112

REACTIONS (2)
  - Product availability issue [Unknown]
  - Intercepted medication error [Unknown]

NARRATIVE: CASE EVENT DATE: 20180202
